FAERS Safety Report 6686112-0 (Version None)
Quarter: 2010Q2

REPORT INFORMATION
  Report Type: 
  Country: None (occurrence: None)
  Receive Date: 20100419
  Receipt Date: 20100415
  Transmission Date: 20101027
  Serious: Yes (Other)
  Sender: FDA-Public Use
  Company Number: SE-BRISTOL-MYERS SQUIBB COMPANY-14843908

PATIENT
  Age: 51 Year
  Sex: Female

DRUGS (3)
  1. ORENCIA [Suspect]
     Indication: RHEUMATOID ARTHRITIS
     Dosage: POWDER FOR CONCENTRATE FOR SOLUTION FOR INFUSION;WHEN REQUIRED GIVEN 1GM.
     Dates: start: 20060611, end: 20090818
  2. IMUREL [Concomitant]
     Dosage: FILM-COATED TABLET
  3. PREDNISOLONE [Concomitant]
     Dosage: PFIZER TABLET

REACTIONS (2)
  - BURSITIS [None]
  - STAPHYLOCOCCAL BACTERAEMIA [None]
